FAERS Safety Report 19574433 (Version 1)
Quarter: 2021Q3

REPORT INFORMATION
  Report Type: Spontaneous
  Country: US (occurrence: US)
  Receive Date: 20210719
  Receipt Date: 20210719
  Transmission Date: 20211014
  Serious: No
  Sender: FDA-Public Use
  Company Number: US-TEVA-2021-US-1933594

PATIENT
  Age: 63 Year
  Sex: Female

DRUGS (1)
  1. TETRACYCLINE [Suspect]
     Active Substance: TETRACYCLINE
     Indication: ACNE
     Dosage: RECEIVED FOR 3 CONSECUTIVE YEARS DURING ADOLESCENCE
     Route: 065

REACTIONS (1)
  - Bone hyperpigmentation [Not Recovered/Not Resolved]
